FAERS Safety Report 4796130-5 (Version None)
Quarter: 2005Q4

REPORT INFORMATION
  Report Type: 
  Country: None (occurrence: None)
  Receive Date: 20051007
  Receipt Date: 20050926
  Transmission Date: 20060501
  Serious: Yes (Other)
  Sender: FDA-Public Use
  Company Number: HQWYE642326SEP05

PATIENT
  Age: 52 Year
  Sex: Female
  Weight: 66.74 kg

DRUGS (2)
  1. PREMPRO [Suspect]
     Indication: VULVOVAGINAL DRYNESS
     Dosage: 0.625MG/2.5 MG DAILY, ORAL
     Route: 048
     Dates: start: 20050917, end: 20050924
  2. ZOLOFT [Concomitant]

REACTIONS (4)
  - CONDITION AGGRAVATED [None]
  - DEPRESSION [None]
  - OBSESSIVE THOUGHTS [None]
  - SUICIDAL IDEATION [None]
